FAERS Safety Report 14323613 (Version 3)
Quarter: 2018Q1

REPORT INFORMATION
  Report Type: Spontaneous
  Country: US (occurrence: US)
  Receive Date: 20171226
  Receipt Date: 20180205
  Transmission Date: 20180509
  Serious: No
  Sender: FDA-Public Use
  Company Number: PHEH2017US041457

PATIENT
  Age: 47 Year
  Sex: Male

DRUGS (2)
  1. DUREZOL [Suspect]
     Active Substance: DIFLUPREDNATE
     Indication: PRODUCT USED FOR UNKNOWN INDICATION
     Dosage: UNK
     Route: 047
     Dates: start: 20171206
  2. DUREZOL [Suspect]
     Active Substance: DIFLUPREDNATE
     Dosage: UNK
     Route: 047

REACTIONS (4)
  - Product physical consistency issue [Unknown]
  - Poor quality drug administered [Unknown]
  - Product quality issue [Unknown]
  - Eye pain [Unknown]

NARRATIVE: CASE EVENT DATE: 20171220
